FAERS Safety Report 17885059 (Version 1)
Quarter: 2020Q2

REPORT INFORMATION
  Report Type: Spontaneous
  Country: US (occurrence: US)
  Receive Date: 20200611
  Receipt Date: 20200611
  Transmission Date: 20200714
  Serious: Yes (Hospitalization)
  Sender: FDA-Public Use
  Company Number: None

PATIENT
  Sex: Female

DRUGS (9)
  1. FLONASE ALGY SPR [Concomitant]
  2. FLUTICASONE SPR [Concomitant]
  3. AMOX/K CLAV TAB [Concomitant]
  4. ZIAC TAB [Concomitant]
  5. EXEMESTANE. [Concomitant]
     Active Substance: EXEMESTANE
  6. FEMARA [Concomitant]
     Active Substance: LETROZOLE
  7. BISOPRL/HCTZ TAB [Concomitant]
  8. AFINITOR [Suspect]
     Active Substance: EVEROLIMUS
     Route: 048
  9. TAMOXIFEN TAB [Concomitant]
     Active Substance: TAMOXIFEN CITRATE

REACTIONS (1)
  - Pneumonia [None]
